FAERS Safety Report 16860218 (Version 1)
Quarter: 2019Q3

REPORT INFORMATION
  Report Type: Spontaneous
  Country: US (occurrence: US)
  Receive Date: 20190927
  Receipt Date: 20190927
  Transmission Date: 20191005
  Serious: No
  Sender: FDA-Public Use
  Company Number: US-PFIZER INC-2019413584

PATIENT
  Age: 62 Year
  Sex: Female

DRUGS (2)
  1. XELJANZ XR [Suspect]
     Active Substance: TOFACITINIB CITRATE
     Dosage: 11 MG, UNK
     Dates: start: 201908
  2. AMITRYN [Concomitant]
     Indication: SLEEP DISORDER
     Dosage: UNK

REACTIONS (2)
  - Arthritis [Not Recovered/Not Resolved]
  - Peripheral swelling [Unknown]
